FAERS Safety Report 8911054 (Version 1)
Quarter: 2012Q4

REPORT INFORMATION
  Report Type: Report from Study
  Country: JP (occurrence: JP)
  Receive Date: 20121116
  Receipt Date: 20121116
  Transmission Date: 20130627
  Serious: Yes (Other)
  Sender: FDA-Public Use
  Company Number: JP-VERTEX PHARMACEUTICAL INC.-AE-2012-007471

PATIENT
  Age: 66 Year
  Sex: Female

DRUGS (13)
  1. VX-950 (TELAPREVIR) [Suspect]
     Indication: CHRONIC HEPATITIS C
     Dosage: 1500 mg, qd
     Route: 048
     Dates: start: 20120403, end: 20120625
  2. RIBAVIRIN [Suspect]
     Indication: CHRONIC HEPATITIS C
     Dosage: 400 mg, qd
     Route: 048
     Dates: start: 20120403, end: 20120416
  3. RIBAVIRIN [Suspect]
     Dosage: 200 mg, qd
     Route: 048
     Dates: start: 20120417, end: 20120423
  4. RIBAVIRIN [Suspect]
     Dosage: 300 mg, qd
     Route: 048
     Dates: start: 20120424, end: 20120507
  5. RIBAVIRIN [Suspect]
     Dosage: 200 mg, qd
     Route: 048
     Dates: start: 20120508, end: 20120514
  6. RIBAVIRIN [Suspect]
     Dosage: 300 mg, qd
     Route: 048
     Dates: start: 20120515, end: 20120604
  7. RIBAVIRIN [Suspect]
     Dosage: 200 mg, qd
     Route: 048
     Dates: start: 20120605, end: 20120618
  8. RIBAVIRIN [Suspect]
     Dosage: 300 mg, qd
     Route: 048
     Dates: start: 20120619, end: 20120625
  9. RIBAVIRIN [Suspect]
     Dosage: 400 mg, qd
     Route: 048
     Dates: start: 20120626
  10. PEGINTERFERON ALFA-2B [Suspect]
     Indication: CHRONIC HEPATITIS C
     Dosage: 1.5 ?g/kg,week
     Route: 058
     Dates: start: 20120403
  11. XYZAL [Concomitant]
     Dosage: 5 mg, qd
     Route: 048
     Dates: end: 20120507
  12. SELBEX [Concomitant]
     Dosage: 1.5 g, qd
     Route: 048
     Dates: start: 20120403
  13. VIVIANT [Concomitant]
     Dosage: 20 mg, qd
     Route: 048
     Dates: start: 20120403

REACTIONS (2)
  - Neutrophil count decreased [Recovered/Resolved]
  - Anaemia [Recovered/Resolved]
